FAERS Safety Report 26137104 (Version 2)
Quarter: 2025Q4

REPORT INFORMATION
  Report Type: Spontaneous
  Country: EU (occurrence: EU)
  Receive Date: 20251209
  Receipt Date: 20251230
  Transmission Date: 20260119
  Serious: Yes (Hospitalization, Other)
  Sender: MYLAN
  Company Number: EU-ABBVIE-6561704

PATIENT
  Age: 52 Year

DRUGS (4)
  1. CYCLOSPORINE [Suspect]
     Active Substance: CYCLOSPORINE
     Indication: Product used for unknown indication
     Dosage: UNK
  2. ETANERCEPT [Suspect]
     Active Substance: ETANERCEPT
     Indication: Product used for unknown indication
     Dosage: UNK
  3. ADALIMUMAB [Suspect]
     Active Substance: ADALIMUMAB
     Indication: Rheumatoid arthritis
     Dosage: UNK
  4. PREDNISONE [Concomitant]
     Active Substance: PREDNISONE
     Indication: Product used for unknown indication
     Dosage: UNK

REACTIONS (9)
  - Rheumatoid arthritis [Unknown]
  - Polyarthritis [Unknown]
  - Type 2 diabetes mellitus [Unknown]
  - Colitis ulcerative [Unknown]
  - Diarrhoea [Unknown]
  - Condition aggravated [Unknown]
  - Psoriasis [Unknown]
  - Dactylitis [Unknown]
  - Peripheral arterial occlusive disease [Unknown]

NARRATIVE: CASE EVENT DATE: 20181001
